FAERS Safety Report 9956487 (Version 1)
Quarter: 2014Q1

REPORT INFORMATION
  Report Type: Report from Study
  Country: US (occurrence: US)
  Receive Date: 20140304
  Receipt Date: 20140304
  Transmission Date: 20141002
  Serious: No
  Sender: FDA-Public Use
  Company Number: US-ABBVIE-13P-163-1100432-00

PATIENT
  Sex: Female

DRUGS (10)
  1. HUMIRA [Suspect]
     Indication: PSORIASIS
  2. METFORMIN [Concomitant]
     Indication: PRODUCT USED FOR UNKNOWN INDICATION
     Route: 048
  3. RITALIN [Concomitant]
     Indication: UNEVALUABLE EVENT
     Dosage: 10 MG WHEN NEEDED TO COMPLETE ERRANDS
     Route: 048
  4. LYRICA [Concomitant]
     Indication: NEUROPATHY PERIPHERAL
     Dosage: 300 MG BY MOUTH DAILY
     Route: 048
  5. PREMARIN [Concomitant]
     Indication: HORMONE REPLACEMENT THERAPY
     Route: 048
  6. ALLEGRA [Concomitant]
     Indication: HYPERSENSITIVITY
     Dosage: 180 MG BY MOUTH DAILY
     Route: 048
  7. ELAVIL [Concomitant]
     Indication: PRODUCT USED FOR UNKNOWN INDICATION
     Dosage: 100 MG BY MOUTH AT BEDTIME
     Route: 048
  8. CAFERGOT [Concomitant]
     Indication: MIGRAINE
     Route: 054
  9. BYSTOLIC [Concomitant]
     Indication: HYPERTENSION
     Dosage: 5 MG BY MOUTH DIALY
     Route: 048
  10. NEXIUM [Concomitant]
     Indication: GASTROOESOPHAGEAL REFLUX DISEASE
     Dosage: 40 MG DAILY
     Route: 048

REACTIONS (2)
  - Migraine [Recovered/Resolved]
  - Injection site pain [Recovered/Resolved]
